FAERS Safety Report 5609173-6 (Version None)
Quarter: 2008Q1

REPORT INFORMATION
  Report Type: 
  Country: None (occurrence: None)
  Receive Date: 20080131
  Receipt Date: 20080125
  Transmission Date: 20080703
  Serious: Yes (Death, Hospitalization)
  Sender: FDA-Public Use
  Company Number: DE-WYE-G00948808

PATIENT
  Age: 80 Year
  Sex: Female
  Weight: 88 kg

DRUGS (11)
  1. TYGACIL [Suspect]
     Indication: ABDOMINAL INFECTION
     Route: 042
     Dates: start: 20070813, end: 20070813
  2. TYGACIL [Suspect]
     Route: 042
     Dates: start: 20070814, end: 20070823
  3. METRONIDAZOLE HCL [Concomitant]
     Dates: start: 20070814, end: 20070823
  4. HEPARIN [Concomitant]
  5. NOREPINEPHRINE BITARTRATE [Concomitant]
  6. METOCLOPRAMIDE [Concomitant]
  7. PROPOFOL [Concomitant]
  8. MUCOSOLVAN [Concomitant]
  9. ACETYLCYSTEINE [Concomitant]
  10. AVELOX [Concomitant]
     Dates: start: 20070815, end: 20070823
  11. PANTOZOL [Concomitant]

REACTIONS (2)
  - DRUG RESISTANCE [None]
  - MULTI-ORGAN FAILURE [None]
